FAERS Safety Report 10350654 (Version 1)
Quarter: 2014Q3

REPORT INFORMATION
  Report Type: Spontaneous
  Country: US (occurrence: US)
  Receive Date: 20140730
  Receipt Date: 20140730
  Transmission Date: 20150326
  Serious: No
  Sender: FDA-Public Use
  Company Number: US-PFIZER INC-2014206925

PATIENT
  Age: 57 Year
  Sex: Female
  Weight: 83.45 kg

DRUGS (5)
  1. SYNTHROID [Suspect]
     Active Substance: LEVOTHYROXINE SODIUM
     Dosage: 112 UG, 1 DF, 1X/DAY (1 IN 1 D)
     Dates: start: 2010
  2. SPIRONOLACTONE. [Concomitant]
     Active Substance: SPIRONOLACTONE
     Indication: HYPERTENSION
     Dosage: UNK
  3. SYNTHROID [Suspect]
     Active Substance: LEVOTHYROXINE SODIUM
     Indication: HYPOTHYROIDISM
     Dosage: 112 UG, UNK
     Dates: start: 2002
  4. CYTOMEL [Suspect]
     Active Substance: LIOTHYRONINE SODIUM
     Indication: HYPOTHYROIDISM
     Dosage: 5 MCG, 1 DF, 1X/DAY (1 IN 1 D)
     Dates: start: 201403, end: 2014
  5. CYTOMEL [Suspect]
     Active Substance: LIOTHYRONINE SODIUM
     Dosage: 2.5 UG, 1X/DAY (1 IN 1 D)
     Dates: start: 20140615

REACTIONS (4)
  - Weight increased [Unknown]
  - Thyroid function test abnormal [Unknown]
  - Irritability [Unknown]
  - Palpitations [Recovered/Resolved]

NARRATIVE: CASE EVENT DATE: 2014
